FAERS Safety Report 16348645 (Version 1)
Quarter: 2019Q2

REPORT INFORMATION
  Report Type: Spontaneous
  Country: JP (occurrence: JP)
  Receive Date: 20190523
  Receipt Date: 20190523
  Transmission Date: 20190711
  Serious: Yes (Hospitalization, Other)
  Sender: FDA-Public Use
  Company Number: JP-MYLANLABS-2019M1048255

PATIENT
  Age: 66 Year
  Sex: Female

DRUGS (16)
  1. BORTEZOMIB. [Suspect]
     Active Substance: BORTEZOMIB
     Indication: PLASMA CELL MYELOMA
     Dosage: ADMINISTERED ON DAYS 1, 8, 15 AND 22 OF EACH 28-DAY CYCLE AS PART OF THE CBD REGIMEN
     Route: 065
  2. POMALIDOMIDE [Suspect]
     Active Substance: POMALIDOMIDE
     Indication: PLASMA CELL MYELOMA
     Dosage: ADMINISTERED ON DAYS 1-21 AS PART OF THE POM-DEX REGIMEN (SALVAGE THERAPY); LATER RESUMED AT A RE...
     Route: 065
  3. VANCOMYCIN [Concomitant]
     Active Substance: VANCOMYCIN
     Indication: ANTIBIOTIC THERAPY
     Route: 065
  4. CYCLOPHOSPHAMIDE. [Suspect]
     Active Substance: CYCLOPHOSPHAMIDE
     Dosage: DOSE: 100MG/BODY ON DAYS 1-4 OF EACH 21-DAY CYCLE AS PART OF THE VCAP REGIMEN (SALVAGE THERAPY)
     Route: 065
  5. DOXORUBICIN [Suspect]
     Active Substance: DOXORUBICIN
     Indication: PLASMA CELL MYELOMA
     Dosage: ADMINISTERED ON DAY 1 OF EACH 21-DAY CYCLE AS PART OF THE VCAP REGIMEN (SALVAGE THERAPY)
     Route: 065
  6. ACICLOVIR [Concomitant]
     Active Substance: ACYCLOVIR
     Indication: ANTIVIRAL TREATMENT
     Route: 065
  7. LENALIDOMIDE [Suspect]
     Active Substance: LENALIDOMIDE
     Indication: PLASMA CELL MYELOMA
     Dosage: ADMINISTERED ON DAYS 1-21 OF EACH 28-DAY CYCLE AS PART OF THE LEN-DEX REGIMEN
     Route: 065
  8. LEVOFLOXACIN. [Concomitant]
     Active Substance: LEVOFLOXACIN
     Indication: ANTIBIOTIC THERAPY
     Route: 065
  9. DEXAMETHASONE. [Suspect]
     Active Substance: DEXAMETHASONE
     Dosage: 20 MILLIGRAM
     Route: 065
  10. DEXAMETHASONE. [Suspect]
     Active Substance: DEXAMETHASONE
     Indication: PLASMA CELL MYELOMA
     Dosage: ADMINISTERED ON DAYS 1, 8, 15 AND 22 OF EACH 28-DAY CYCLE AS PART OF THE CBD REGIMEN AND LEN-DEX ...
     Route: 065
  11. MELPHALAN. [Suspect]
     Active Substance: MELPHALAN
     Indication: PLASMA CELL MYELOMA
     Dosage: HIGH DOSE
     Route: 065
  12. CYCLOPHOSPHAMIDE. [Suspect]
     Active Substance: CYCLOPHOSPHAMIDE
     Indication: PLASMA CELL MYELOMA
     Dosage: DOSE: 400MG/BODY ON DAYS 1, 8, 15 AND 22 OF EACH 28-DAY CYCLE AS PART OF THE CBD REGIMEN
     Route: 065
  13. VINCRISTINE [Suspect]
     Active Substance: VINCRISTINE
     Indication: PLASMA CELL MYELOMA
     Dosage: DOSE: 1MG/BODY ON DAY 1 OF EACH 21-DAY CYCLE AS PART OF THE VCAP REGIMEN (SALVAGE THERAPY)
     Route: 065
  14. MEROPENEM. [Concomitant]
     Active Substance: MEROPENEM
     Indication: ANTIBIOTIC THERAPY
     Route: 065
  15. PREDNISOLONE. [Suspect]
     Active Substance: PREDNISOLONE
     Indication: PLASMA CELL MYELOMA
     Dosage: ADMINISTERED ON DAYS 1-4 OF EACH 21-DAY CYCLE AS PART OF THE VCAP REGIMEN (SALVAGE THERAPY)
     Route: 065
  16. MINOCYCLINE [Concomitant]
     Active Substance: MINOCYCLINE\MINOCYCLINE HYDROCHLORIDE
     Indication: ANTIBIOTIC THERAPY
     Route: 065

REACTIONS (6)
  - Drug ineffective [Unknown]
  - Hepatic function abnormal [Recovering/Resolving]
  - Ureteritis [Recovering/Resolving]
  - Adenovirus infection [Recovered/Resolved]
  - Peritonitis [Recovering/Resolving]
  - Cystitis haemorrhagic [Recovering/Resolving]
